FAERS Safety Report 7503222-6 (Version None)
Quarter: 2011Q2

REPORT INFORMATION
  Report Type: 
  Country: None (occurrence: None)
  Receive Date: 20110525
  Receipt Date: 20110113
  Transmission Date: 20111010
  Serious: No
  Sender: FDA-Public Use
  Company Number: A0905849A

PATIENT
  Age: 57 Year
  Sex: Female

DRUGS (4)
  1. BACTROBAN [Suspect]
     Indication: SINUSITIS
     Dosage: 1APP TWICE PER DAY
     Route: 045
     Dates: start: 20080101, end: 20101201
  2. MUCINEX [Concomitant]
  3. ASPIRIN [Concomitant]
  4. SIMVASTATIN [Concomitant]

REACTIONS (3)
  - PRODUCT QUALITY ISSUE [None]
  - SINUSITIS [None]
  - EXPIRED DRUG ADMINISTERED [None]
